FAERS Safety Report 13177448 (Version 1)
Quarter: 2017Q1

REPORT INFORMATION
  Report Type: Report from Study
  Country: US (occurrence: US)
  Receive Date: 20170201
  Receipt Date: 20170201
  Transmission Date: 20170428
  Serious: Yes (Hospitalization)
  Sender: FDA-Public Use
  Company Number: US-EXELIXIS-CABO-16006255

PATIENT
  Sex: Male

DRUGS (12)
  1. COMETRIQ [Suspect]
     Active Substance: CABOZANTINIB S-MALATE
     Indication: RENAL CANCER
     Dosage: 60 MG, QD
     Route: 048
     Dates: start: 20160401
  2. OXYBUTYNIN [Concomitant]
     Active Substance: OXYBUTYNIN
  3. COMBIVENT [Concomitant]
     Active Substance: ALBUTEROL SULFATE\IPRATROPIUM BROMIDE
  4. OLANZAPINE. [Concomitant]
     Active Substance: OLANZAPINE
  5. SYNTHROID [Concomitant]
     Active Substance: LEVOTHYROXINE SODIUM
  6. LOPERAMIDE [Concomitant]
     Active Substance: LOPERAMIDE
  7. TAMSULOSIN [Concomitant]
     Active Substance: TAMSULOSIN
  8. SENNOSIDES A+B [Concomitant]
     Active Substance: SENNOSIDES A AND B
  9. TELMISARTAN. [Concomitant]
     Active Substance: TELMISARTAN
  10. FENTANYL. [Concomitant]
     Active Substance: FENTANYL
  11. PANTOPRAZOLE [Concomitant]
     Active Substance: PANTOPRAZOLE SODIUM
  12. PREGABALIN. [Concomitant]
     Active Substance: PREGABALIN

REACTIONS (18)
  - Brain neoplasm [Unknown]
  - Pain [Unknown]
  - Thyroid disorder [Unknown]
  - Abdominal pain upper [Unknown]
  - Pyrexia [Recovered/Resolved]
  - Product packaging issue [Unknown]
  - Off label use [Unknown]
  - Insomnia [Not Recovered/Not Resolved]
  - Hypersomnia [Unknown]
  - Mouth haemorrhage [Not Recovered/Not Resolved]
  - Oropharyngeal pain [Unknown]
  - Oral pain [Unknown]
  - Diarrhoea [Unknown]
  - Abdominal discomfort [Unknown]
  - Dysphonia [Unknown]
  - Nausea [Unknown]
  - Dry mouth [Unknown]
  - Pain in extremity [Unknown]
